FAERS Safety Report 8315393-2 (Version None)
Quarter: 2012Q2

REPORT INFORMATION
  Report Type: 
  Country: None (occurrence: None)
  Receive Date: 20120426
  Receipt Date: 20120411
  Transmission Date: 20120825
  Serious: Yes (Life-Threatening)
  Sender: FDA-Public Use
  Company Number: ES-ENDO PHARMACEUTICALS INC.-FRVA20120007

PATIENT
  Age: 37 Year
  Sex: Female

DRUGS (2)
  1. FROVA [Suspect]
     Indication: MIGRAINE
     Route: 048
     Dates: start: 20120211, end: 20120211
  2. PAROXETINE [Suspect]
     Indication: DEPRESSION
     Route: 048
     Dates: end: 20120211

REACTIONS (4)
  - CHEST PAIN [None]
  - DRUG INTERACTION [None]
  - CARDIAC ARREST [None]
  - VENTRICULAR FIBRILLATION [None]
